FAERS Safety Report 25945545 (Version 3)
Quarter: 2025Q4

REPORT INFORMATION
  Report Type: Report from Study
  Country: CA (occurrence: CA)
  Receive Date: 20251021
  Receipt Date: 20251217
  Transmission Date: 20260119
  Serious: Yes (Hospitalization, Other)
  Sender: PFIZER
  Company Number: CA-PFIZER INC-202500204870

PATIENT
  Age: 73 Year
  Sex: Male

DRUGS (3)
  1. ABRILADA [Suspect]
     Active Substance: ADALIMUMAB-AFZB
     Indication: Crohn^s disease
     Dosage: 1 DF, 160 MG ON WK 0, THEN 80 MG ON WK 2, THEN 40 MG WEEKLY FROM WK 4
     Route: 058
     Dates: start: 20250929
  2. ABRILADA [Suspect]
     Active Substance: ADALIMUMAB-AFZB
     Dosage: 1 DF, 160 MG ON WK 0, THEN 80 MG ON WK 2, THEN 40 MG WEEKLY FROM WK 4
     Route: 058
     Dates: start: 2025
  3. ABRILADA [Suspect]
     Active Substance: ADALIMUMAB-AFZB
     Dosage: 1 DF (160 MG ON WK 0, THEN 80 MG ON WK 2, THEN 40 MG WEEKLY FROM WK 4)
     Route: 058
     Dates: start: 2025

REACTIONS (7)
  - Chronic obstructive pulmonary disease [Not Recovered/Not Resolved]
  - Pulmonary oedema [Recovering/Resolving]
  - Pneumonia [Recovering/Resolving]
  - Infection [Unknown]
  - Chest pain [Unknown]
  - Musculoskeletal pain [Recovering/Resolving]
  - Dyspnoea [Unknown]

NARRATIVE: CASE EVENT DATE: 20250101
